FAERS Safety Report 11415485 (Version 1)
Quarter: 2015Q3

REPORT INFORMATION
  Report Type: Spontaneous
  Country: US (occurrence: US)
  Receive Date: 20150825
  Receipt Date: 20150825
  Transmission Date: 20151125
  Serious: No
  Sender: FDA-Public Use
  Company Number: US-MYLANLABS-2015M1004467

PATIENT
  Age: 54 Year
  Sex: Female

DRUGS (10)
  1. ESTRADIOL. [Concomitant]
     Active Substance: ESTRADIOL
     Dosage: UNK
  2. BUPROPION HYDROCHLORIDE EXTENDED RELEASE (XL) [Suspect]
     Active Substance: BUPROPION HYDROCHLORIDE
     Indication: OFF LABEL USE
     Dosage: 300 MG, UNK
     Route: 048
     Dates: start: 2014, end: 2014
  3. VITAMIN D                          /00107901/ [Concomitant]
     Active Substance: ERGOCALCIFEROL
     Dosage: UNK
  4. BUPROPION HYDROCHLORIDE EXTENDED RELEASE (XL) [Suspect]
     Active Substance: BUPROPION HYDROCHLORIDE
     Indication: HYPERTENSION
     Dosage: 150 MG, UNK
     Route: 048
     Dates: start: 20141021, end: 2014
  5. NEXIUM [Concomitant]
     Active Substance: ESOMEPRAZOLE MAGNESIUM
     Dosage: UNK
  6. LORATADINE. [Concomitant]
     Active Substance: LORATADINE
     Dosage: UNK
  7. PRENATAL VITAMINS                  /02014401/ [Concomitant]
     Active Substance: VITAMINS
     Dosage: UNK
  8. BUPROPION HYDROCHLORIDE EXTENDED RELEASE (XL) [Suspect]
     Active Substance: BUPROPION HYDROCHLORIDE
     Dosage: 150 UNK, UNK
     Route: 048
     Dates: start: 2014, end: 20141120
  9. COLACE [Concomitant]
     Active Substance: DOCUSATE SODIUM
     Dosage: UNK
  10. LOSARTAN. [Concomitant]
     Active Substance: LOSARTAN
     Dosage: UNK

REACTIONS (3)
  - Unevaluable event [Recovered/Resolved]
  - Drug ineffective for unapproved indication [Recovered/Resolved]
  - Impaired driving ability [Recovered/Resolved]

NARRATIVE: CASE EVENT DATE: 2014
